FAERS Safety Report 10878867 (Version 1)
Quarter: 2015Q1

REPORT INFORMATION
  Report Type: Spontaneous
  Country: US (occurrence: None)
  Receive Date: 20150224
  Receipt Date: 20150224
  Transmission Date: 20150721
  Serious: No
  Sender: FDA-Public Use
  Company Number: None

PATIENT
  Age: 58 Year
  Sex: Male
  Weight: 85.6 kg

DRUGS (1)
  1. PREDNISONE. [Suspect]
     Active Substance: PREDNISONE
     Indication: GOUT
     Dates: start: 20140816, end: 20141124

REACTIONS (3)
  - Self-medication [None]
  - Psychotic disorder [None]
  - Somnolence [None]

NARRATIVE: CASE EVENT DATE: 20141124
